FAERS Safety Report 21628722 (Version 1)
Quarter: 2022Q4

REPORT INFORMATION
  Report Type: Other
  Country: CA (occurrence: CA)
  Receive Date: 20221122
  Receipt Date: 20221122
  Transmission Date: 20230112
  Serious: Yes (Life-Threatening, Hospitalization)
  Sender: FDA-Public Use
  Company Number: CA-CHIESI-2022CHF06085

PATIENT
  Age: 16 Year
  Sex: Male
  Weight: 39 kg

DRUGS (2)
  1. FERRIPROX [Suspect]
     Active Substance: DEFERIPRONE
     Indication: Thalassaemia
     Dosage: 95 MILLIGRAM/KILOGRAM, QD
     Route: 048
  2. DEFERASIROX [Suspect]
     Active Substance: DEFERASIROX
     Indication: Thalassaemia
     Dosage: 20 MILLIGRAM/KILOGRAM, QD
     Route: 048

REACTIONS (2)
  - Haemosiderosis [Recovered/Resolved]
  - Pancreatitis [Recovered/Resolved]
